FAERS Safety Report 7712949-2 (Version None)
Quarter: 2011Q3

REPORT INFORMATION
  Report Type: 
  Country: None (occurrence: None)
  Receive Date: 20110826
  Receipt Date: 20110817
  Transmission Date: 20111222
  Serious: Yes (Other)
  Sender: FDA-Public Use
  Company Number: PHEH2007US14412

PATIENT
  Sex: Female
  Weight: 67.12 kg

DRUGS (13)
  1. AREDIA [Suspect]
     Indication: BREAST CANCER
     Dates: start: 19990101, end: 20040101
  2. FEMARA [Concomitant]
     Indication: BREAST CANCER
  3. TAXOTERE [Concomitant]
  4. NOLVADEX [Concomitant]
  5. PERCOCET [Concomitant]
  6. EFFEXOR [Concomitant]
  7. XELODA [Concomitant]
  8. TAMOXIFEN CITRATE [Concomitant]
  9. ZOMETA [Suspect]
     Dates: start: 20040101, end: 20050101
  10. GEMZAR [Concomitant]
  11. TAXOL [Concomitant]
  12. NAVELBINE [Concomitant]
  13. LORTAB [Concomitant]

REACTIONS (57)
  - HEPATIC CYST [None]
  - ANHEDONIA [None]
  - PATHOLOGICAL FRACTURE [None]
  - DYSPNOEA [None]
  - FALL [None]
  - CEREBRAL ATROPHY [None]
  - POLLAKIURIA [None]
  - TOOTH EROSION [None]
  - CEREBRAL HAEMATOMA [None]
  - TENOSYNOVITIS [None]
  - SINUS DISORDER [None]
  - METASTASES TO LUNG [None]
  - OSTEONECROSIS OF JAW [None]
  - INJURY [None]
  - PAIN [None]
  - GINGIVAL DISORDER [None]
  - TOOTH DISORDER [None]
  - PARAESTHESIA [None]
  - FATIGUE [None]
  - BONE PAIN [None]
  - ANAEMIA [None]
  - GINGIVAL INFECTION [None]
  - VOMITING [None]
  - TRAUMATIC INTRACRANIAL HAEMORRHAGE [None]
  - PLEURAL EFFUSION [None]
  - SPINAL OSTEOARTHRITIS [None]
  - SKIN LESION [None]
  - VULVOVAGINAL DRYNESS [None]
  - HOT FLUSH [None]
  - METASTASES TO OVARY [None]
  - METASTASES TO LYMPH NODES [None]
  - TENDON DISORDER [None]
  - OEDEMA PERIPHERAL [None]
  - WEIGHT DECREASED [None]
  - METASTASES TO LIVER [None]
  - ANXIETY [None]
  - RECTAL HAEMORRHAGE [None]
  - FEMUR FRACTURE [None]
  - RENAL CYST [None]
  - ASTHENIA [None]
  - HEPATIC LESION [None]
  - TOOTHACHE [None]
  - TOOTH FRACTURE [None]
  - PERIODONTAL DISEASE [None]
  - ATELECTASIS [None]
  - DIZZINESS [None]
  - SPINAL COMPRESSION FRACTURE [None]
  - MYALGIA [None]
  - BURSITIS [None]
  - ALOPECIA [None]
  - METASTASES TO BONE [None]
  - DENTAL CARIES [None]
  - TOOTH LOSS [None]
  - STOMATITIS [None]
  - CYST [None]
  - THROMBOCYTOPENIA [None]
  - HYPOAESTHESIA [None]
